FAERS Safety Report 9889763 (Version 2)
Quarter: 2014Q2

REPORT INFORMATION
  Report Type: Spontaneous
  Country: US (occurrence: US)
  Receive Date: 20140211
  Receipt Date: 20140401
  Transmission Date: 20141212
  Serious: Yes (Death, Hospitalization)
  Sender: FDA-Public Use
  Company Number: US-AMGEN-USASP2014009396

PATIENT
  Age: 89 Year
  Sex: Male

DRUGS (5)
  1. PROCRIT [Suspect]
     Indication: MYELODYSPLASTIC SYNDROME
     Dosage: 20000 UNIT WEEKLY
     Route: 058
     Dates: start: 20110309
  2. AMLODIPINE [Concomitant]
     Dosage: UNK
  3. L THYROXINE [Concomitant]
     Dosage: UNK
  4. ATORVASTATIN [Concomitant]
     Dosage: UNK
  5. METOPROLOL [Concomitant]
     Dosage: UNK

REACTIONS (3)
  - Aneurysm [Fatal]
  - Aortic aneurysm rupture [Fatal]
  - Anaemia [Unknown]
